FAERS Safety Report 19920110 (Version 11)
Quarter: 2024Q1

REPORT INFORMATION
  Report Type: Spontaneous
  Country: CA (occurrence: CA)
  Receive Date: 20211005
  Receipt Date: 20240227
  Transmission Date: 20240410
  Serious: Yes (Other)
  Sender: FDA-Public Use
  Company Number: CA-PFIZER INC-2020361028

PATIENT
  Age: 24 Year
  Sex: Female
  Weight: 67 kg

DRUGS (12)
  1. RUXIENCE [Suspect]
     Active Substance: RITUXIMAB-PVVR
     Indication: Granulomatosis with polyangiitis
     Dosage: 1000 MG, DAY 1 AND DAY 15
     Route: 042
     Dates: start: 20200923, end: 20201007
  2. RUXIENCE [Suspect]
     Active Substance: RITUXIMAB-PVVR
     Dosage: 1000 MG, DAY 0 AND DAY 15 (SECOND DOSE 07OCT2020)
     Route: 042
     Dates: start: 20201007
  3. RUXIENCE [Suspect]
     Active Substance: RITUXIMAB-PVVR
     Dosage: 500 MG, EVERY 6 MONTH (FOR ONE DOSE)
     Route: 042
     Dates: start: 20210520, end: 20210520
  4. RUXIENCE [Suspect]
     Active Substance: RITUXIMAB-PVVR
     Dosage: 500 MG, ONE DOSE
     Route: 042
     Dates: start: 20220210
  5. RUXIENCE [Suspect]
     Active Substance: RITUXIMAB-PVVR
     Dosage: 500 MG  ONE DOSE
     Route: 042
     Dates: start: 20220720, end: 20220720
  6. RUXIENCE [Suspect]
     Active Substance: RITUXIMAB-PVVR
     Dosage: 500 MG, EVERY 6 MONTH
     Route: 042
     Dates: start: 20230110
  7. RUXIENCE [Suspect]
     Active Substance: RITUXIMAB-PVVR
     Dosage: 500 MG, ONE DOSE EVERY 6 MONTHS
     Route: 042
     Dates: start: 20230720
  8. VITAMINS NOS [Concomitant]
     Active Substance: VITAMINS
     Dosage: 1 DF
  9. VITAMINS NOS [Concomitant]
     Active Substance: VITAMINS
     Dosage: 1 DF DOSAGE NOT AVAILABLE
     Route: 065
  10. SEPTRA [Concomitant]
     Active Substance: SULFAMETHOXAZOLE\TRIMETHOPRIM
     Dosage: 1 DF 800/160 MG ONE TAB MONDAY, WEDNESDAY AND FRIDAY, 3X WEEK
  11. SEPTRA [Concomitant]
     Active Substance: SULFAMETHOXAZOLE\TRIMETHOPRIM
     Dosage: 1 DF, 3 TIMES A WEEK (DOSAGE NOT AVAILABLE)
     Route: 065
  12. SEPTRA [Concomitant]
     Active Substance: SULFAMETHOXAZOLE\TRIMETHOPRIM
     Dosage: 1 DF, 800/160 MG ONE TABLET MONDAY, WEDNESDAY AND FRIDAY., 3 X WEEK
     Route: 065

REACTIONS (13)
  - Cholesteatoma [Unknown]
  - Disease recurrence [Unknown]
  - Excessive granulation tissue [Unknown]
  - COVID-19 [Unknown]
  - Pyrexia [Unknown]
  - Influenza like illness [Unknown]
  - Cough [Not Recovered/Not Resolved]
  - Rhinorrhoea [Not Recovered/Not Resolved]
  - Respiratory tract congestion [Not Recovered/Not Resolved]
  - Off label use [Unknown]
  - Off label use [Unknown]
  - Intentional product use issue [Unknown]
  - Maternal exposure during pregnancy [Unknown]

NARRATIVE: CASE EVENT DATE: 20201001
